FAERS Safety Report 15933145 (Version 6)
Quarter: 2021Q2

REPORT INFORMATION
  Report Type: Report from Study
  Country: DE (occurrence: DE)
  Receive Date: 20190207
  Receipt Date: 20210527
  Transmission Date: 20210716
  Serious: Yes (Hospitalization)
  Sender: FDA-Public Use
  Company Number: DE-JNJFOC-20190200442

PATIENT
  Sex: Male
  Weight: 73 kg

DRUGS (12)
  1. TORASEMIDE [Concomitant]
     Active Substance: TORSEMIDE
     Indication: ILLNESS
     Route: 065
     Dates: start: 2017
  2. ZOLEDRONATE [Concomitant]
     Active Substance: ZOLEDRONIC ACID
     Indication: ILLNESS
     Route: 065
     Dates: start: 201801
  3. TOUJEO [Concomitant]
     Active Substance: INSULIN GLARGINE
     Indication: ILLNESS
     Dosage: 30 IE
     Route: 065
     Dates: start: 201809
  4. AMPHO MORONAL [Concomitant]
     Active Substance: AMPHOTERICIN B
     Indication: MUCOSITIS MANAGEMENT
     Route: 065
     Dates: start: 201801
  5. TANTUM VERDE [Concomitant]
     Active Substance: BENZYDAMINE HYDROCHLORIDE
     Indication: MUCOSITIS MANAGEMENT
     Route: 065
     Dates: start: 201801
  6. CANDESARTAN. [Concomitant]
     Active Substance: CANDESARTAN
     Indication: ILLNESS
     Route: 065
     Dates: start: 2017
  7. XARELTO [Concomitant]
     Active Substance: RIVAROXABAN
     Indication: ILLNESS
     Route: 065
     Dates: start: 201806
  8. NIVOLUMAB [Suspect]
     Active Substance: NIVOLUMAB
     Indication: SARCOMA METASTATIC
     Route: 065
  9. CALCIUM + VIT D [Concomitant]
     Active Substance: CALCIUM\VITAMIN D
     Indication: ILLNESS
     Route: 065
     Dates: start: 201806
  10. MORPHINE SULPHATE [Concomitant]
     Active Substance: MORPHINE SULFATE
     Indication: ILLNESS
     Route: 065
     Dates: start: 201802
  11. MOVICOL [Concomitant]
     Active Substance: POLYETHYLENE GLYCOL 3350\POTASSIUM CHLORIDE\SODIUM BICARBONATE\SODIUM CHLORIDE
     Indication: CONSTIPATION PROPHYLAXIS
     Dosage: 1 BAG
     Route: 065
     Dates: start: 201806
  12. TRABECTEDIN [Suspect]
     Active Substance: TRABECTEDIN
     Indication: SARCOMA METASTATIC
     Dosage: CYCLE 1 DAY 1
     Route: 042
     Dates: start: 20190117, end: 20190117

REACTIONS (2)
  - Urinary tract infection [Recovered/Resolved]
  - Platelet count decreased [Recovered/Resolved]

NARRATIVE: CASE EVENT DATE: 20190123
